FAERS Safety Report 10217091 (Version 1)
Quarter: 2014Q2

REPORT INFORMATION
  Report Type: Spontaneous
  Country: AU (occurrence: AU)
  Receive Date: 20140604
  Receipt Date: 20140604
  Transmission Date: 20141212
  Serious: Yes (Other)
  Sender: FDA-Public Use
  Company Number: ALCN2014AU003257

PATIENT
  Age: 59 Year
  Sex: Female

DRUGS (2)
  1. ZADITEN OPHTHA EYE DROPS [Suspect]
     Indication: EYE ALLERGY
     Dosage: 1 GTT, BID
     Route: 047
     Dates: start: 201404
  2. ZADITEN OPHTHA EYE DROPS [Suspect]
     Indication: DRY EYE

REACTIONS (7)
  - Visual acuity reduced [Not Recovered/Not Resolved]
  - Eye haemorrhage [Not Recovered/Not Resolved]
  - Eyelid bleeding [Not Recovered/Not Resolved]
  - Eye discharge [Not Recovered/Not Resolved]
  - Eyelid oedema [Not Recovered/Not Resolved]
  - Eye pain [Not Recovered/Not Resolved]
  - Rash [Not Recovered/Not Resolved]
